FAERS Safety Report 19128907 (Version 9)
Quarter: 2021Q2

REPORT INFORMATION
  Report Type: Report from Study
  Country: US (occurrence: US)
  Receive Date: 20210413
  Receipt Date: 20210609
  Transmission Date: 20210717
  Serious: No
  Sender: FDA-Public Use
  Company Number: US-ALKERMES INC.-ALK-2021-001761

PATIENT
  Age: 33 Year
  Sex: Male

DRUGS (26)
  1. NALTREXONE [Suspect]
     Active Substance: NALTREXONE
     Dosage: 6 MILLIGRAM, QD
     Route: 048
     Dates: start: 20210321, end: 20210321
  2. CLONIDINE. [Suspect]
     Active Substance: CLONIDINE
     Dosage: 0.8 MILLIGRAM, QD
     Route: 065
     Dates: start: 20210318, end: 20210318
  3. CLONIDINE. [Suspect]
     Active Substance: CLONIDINE
     Dosage: 0.6 MILLIGRAM, QD
     Route: 065
     Dates: start: 20210317, end: 20210317
  4. CLONAZEPAM. [Suspect]
     Active Substance: CLONAZEPAM
     Dosage: 3 MILLIGRAM, QD
     Route: 065
     Dates: start: 20210323, end: 20210323
  5. NALTREXONE [Suspect]
     Active Substance: NALTREXONE
     Dosage: 1 MILLIGRAM, QD
     Route: 048
     Dates: start: 20210319, end: 20210319
  6. CLONIDINE. [Suspect]
     Active Substance: CLONIDINE
     Indication: DRUG WITHDRAWAL SYNDROME
     Dosage: 0.2 MILLIGRAM, QD
     Route: 065
     Dates: start: 20210324, end: 20210324
  7. CLONIDINE. [Suspect]
     Active Substance: CLONIDINE
     Dosage: 0.4 MILLIGRAM, QD
     Route: 065
     Dates: start: 20210323, end: 20210323
  8. CLONIDINE. [Suspect]
     Active Substance: CLONIDINE
     Dosage: 0.4 MILLIGRAM, QD
     Route: 065
     Dates: start: 20210322, end: 20210322
  9. NALTREXONE [Suspect]
     Active Substance: NALTREXONE
     Indication: DRUG USE DISORDER
     Dosage: 6 MILLIGRAM, QD
     Route: 048
     Dates: start: 20210322, end: 20210322
  10. NALTREXONE [Suspect]
     Active Substance: NALTREXONE
     Dosage: 2 MILLIGRAM, QD
     Route: 048
     Dates: start: 20210320, end: 20210320
  11. CLONIDINE. [Suspect]
     Active Substance: CLONIDINE
     Dosage: 0.4 MILLIGRAM, QD
     Route: 065
     Dates: start: 20210316, end: 20210316
  12. CLONAZEPAM. [Suspect]
     Active Substance: CLONAZEPAM
     Dosage: 3 MILLIGRAM, QD
     Route: 065
     Dates: start: 20210321, end: 20210321
  13. CLONAZEPAM. [Suspect]
     Active Substance: CLONAZEPAM
     Indication: DRUG WITHDRAWAL SYNDROME
     Dosage: 1 MILLIGRAM, QD
     Route: 065
     Dates: start: 20210324, end: 20210324
  14. VIVITROL [Suspect]
     Active Substance: NALTREXONE
     Indication: DRUG USE DISORDER
     Dosage: 380 MILLIGRAM, QMO
     Route: 030
     Dates: start: 20210322, end: 20210322
  15. BUPRENORPHINE. [Suspect]
     Active Substance: BUPRENORPHINE
     Dosage: 6 MILLIGRAM, QD
     Route: 060
     Dates: start: 20210316, end: 20210316
  16. CLONIDINE. [Suspect]
     Active Substance: CLONIDINE
     Dosage: 1 MILLIGRAM, QD
     Route: 065
     Dates: start: 20210319, end: 20210319
  17. CLONAZEPAM. [Suspect]
     Active Substance: CLONAZEPAM
     Dosage: 3 MILLIGRAM, QD
     Route: 065
     Dates: start: 20210322, end: 20210322
  18. CLONAZEPAM. [Suspect]
     Active Substance: CLONAZEPAM
     Dosage: 2 MILLIGRAM, QD
     Route: 065
     Dates: start: 20210316, end: 20210316
  19. CLONIDINE. [Suspect]
     Active Substance: CLONIDINE
     Dosage: 0.6 MILLIGRAM, QD
     Route: 065
     Dates: start: 20210320, end: 20210320
  20. CLONAZEPAM. [Suspect]
     Active Substance: CLONAZEPAM
     Dosage: 4 MILLIGRAM, QD
     Route: 065
     Dates: start: 20210319, end: 20210319
  21. CLONAZEPAM. [Suspect]
     Active Substance: CLONAZEPAM
     Dosage: 3 MILLIGRAM, QD
     Route: 065
     Dates: start: 20210317, end: 20210317
  22. BUPRENORPHINE. [Suspect]
     Active Substance: BUPRENORPHINE
     Indication: DRUG USE DISORDER
     Dosage: 2 MILLIGRAM, QD
     Route: 060
     Dates: start: 20210317, end: 20210317
  23. CLONAZEPAM. [Suspect]
     Active Substance: CLONAZEPAM
     Dosage: 3 MILLIGRAM, QD
     Route: 065
     Dates: start: 20210320, end: 20210320
  24. CLONAZEPAM. [Suspect]
     Active Substance: CLONAZEPAM
     Dosage: 3 MILLIGRAM, QD
     Route: 065
     Dates: start: 20210318, end: 20210318
  25. CLONIDINE. [Suspect]
     Active Substance: CLONIDINE
     Dosage: 0.4 MILLIGRAM, QD
     Route: 065
     Dates: start: 20210321, end: 20210321
  26. CLONIDINE. [Suspect]
     Active Substance: CLONIDINE
     Dosage: 0.8 MILLIGRAM, QD
     Route: 065
     Dates: start: 20210315, end: 20210315

REACTIONS (1)
  - Substance-induced psychotic disorder [Recovered/Resolved]

NARRATIVE: CASE EVENT DATE: 20210404
